FAERS Safety Report 15365044 (Version 1)
Quarter: 2018Q3

REPORT INFORMATION
  Report Type: Report from Study
  Country: US (occurrence: US)
  Receive Date: 20180910
  Receipt Date: 20180910
  Transmission Date: 20181010
  Serious: No
  Sender: FDA-Public Use
  Company Number: PHHY2018US092266

PATIENT

DRUGS (1)
  1. ILARIS [Suspect]
     Active Substance: CANAKINUMAB
     Indication: STILL^S DISEASE
     Dosage: 150 MG, (EVERY 9 WEEKS)
     Route: 058

REACTIONS (3)
  - Arthralgia [Unknown]
  - Inappropriate schedule of drug administration [Unknown]
  - Joint swelling [Unknown]
